FAERS Safety Report 22196586 (Version 4)
Quarter: 2023Q2

REPORT INFORMATION
  Report Type: Report from Study
  Country: ES (occurrence: ES)
  Receive Date: 20230411
  Receipt Date: 20230509
  Transmission Date: 20230722
  Serious: Yes (Other)
  Sender: FDA-Public Use
  Company Number: ES-ABBVIE-4345984

PATIENT
  Age: 69 Year
  Sex: Female

DRUGS (6)
  1. CARBIDOPA\LEVODOPA [Suspect]
     Active Substance: CARBIDOPA\LEVODOPA
     Indication: Parkinson^s disease
     Route: 050
     Dates: start: 20201008
  2. CARBIDOPA\LEVODOPA [Suspect]
     Active Substance: CARBIDOPA\LEVODOPA
     Route: 050
  3. CARBIDOPA\LEVODOPA [Suspect]
     Active Substance: CARBIDOPA\LEVODOPA
     Dosage: MODIFIES DOSES OF PUMP
     Route: 050
  4. CARBIDOPA\LEVODOPA [Suspect]
     Active Substance: CARBIDOPA\LEVODOPA
     Dosage: MODIFIES DOSES OF PUMP
     Route: 050
  5. OPICAPONE [Suspect]
     Active Substance: OPICAPONE
     Indication: Product used for unknown indication
     Dosage: 1 TABLET AT NIGHT
     Route: 065
  6. GABAPENTIN [Concomitant]
     Active Substance: GABAPENTIN
     Indication: Product used for unknown indication
     Dosage: TIME INTERVAL: 0.33333333 DAYS
     Route: 065

REACTIONS (35)
  - Dyspnoea [Not Recovered/Not Resolved]
  - Malaise [Unknown]
  - Muscle rigidity [Not Recovered/Not Resolved]
  - Constipation [Unknown]
  - Stoma site infection [Recovered/Resolved]
  - Muscle spasms [Not Recovered/Not Resolved]
  - Movement disorder [Not Recovered/Not Resolved]
  - Paraesthesia [Unknown]
  - Malaise [Unknown]
  - Dyskinesia [Unknown]
  - Device issue [Recovered/Resolved]
  - Device physical property issue [Unknown]
  - Tremor [Not Recovered/Not Resolved]
  - On and off phenomenon [Unknown]
  - Pain [Not Recovered/Not Resolved]
  - Dysphagia [Not Recovered/Not Resolved]
  - Device issue [Recovered/Resolved]
  - Peripheral coldness [Not Recovered/Not Resolved]
  - Depressed mood [Not Recovered/Not Resolved]
  - Device physical property issue [Recovered/Resolved]
  - Incorrect dose administered [Unknown]
  - Stoma site discharge [Recovered/Resolved]
  - Condition aggravated [Unknown]
  - Device physical property issue [Not Recovered/Not Resolved]
  - Arthritis [Not Recovered/Not Resolved]
  - Pain [Not Recovered/Not Resolved]
  - Anxiety [Not Recovered/Not Resolved]
  - Fall [Not Recovered/Not Resolved]
  - Fall [Not Recovered/Not Resolved]
  - Device kink [Recovered/Resolved]
  - Inflammation [Not Recovered/Not Resolved]
  - Limb injury [Not Recovered/Not Resolved]
  - Injury [Not Recovered/Not Resolved]
  - Head injury [Not Recovered/Not Resolved]
  - Flatulence [Unknown]

NARRATIVE: CASE EVENT DATE: 20230101
